FAERS Safety Report 9171001 (Version 1)
Quarter: 2013Q1

REPORT INFORMATION
  Report Type: Spontaneous
  Country: ES (occurrence: ES)
  Receive Date: 20130319
  Receipt Date: 20130319
  Transmission Date: 20140127
  Serious: Yes (Hospitalization)
  Sender: FDA-Public Use
  Company Number: ES-BAYER-2013-030361

PATIENT
  Age: 34 Year
  Sex: Female

DRUGS (3)
  1. NIFEDIPINE [Suspect]
     Indication: PREMATURE LABOUR
  2. BETAMETHASONE [Suspect]
     Indication: MIRROR SYNDROME
     Dosage: 12 MG/24HR, BID
  3. ATOSIBAN [Suspect]
     Indication: PREMATURE LABOUR

REACTIONS (5)
  - Mirror syndrome [Recovered/Resolved]
  - Premature delivery [None]
  - Exposure during pregnancy [None]
  - Off label use [None]
  - Condition aggravated [None]
